FAERS Safety Report 11382366 (Version 1)
Quarter: 2015Q3

REPORT INFORMATION
  Report Type: Spontaneous
  Country: US (occurrence: US)
  Receive Date: 20150811
  Receipt Date: 20150811
  Transmission Date: 20151125
  Serious: No
  Sender: FDA-Public Use
  Company Number: US-ELI_LILLY_AND_COMPANY-US201005003087

PATIENT
  Sex: Female
  Weight: 72 kg

DRUGS (4)
  1. FUROSEMIDE. [Concomitant]
     Active Substance: FUROSEMIDE
  2. QUETIAPINE FUMARATE. [Concomitant]
     Active Substance: QUETIAPINE FUMARATE
  3. ADCIRCA [Suspect]
     Active Substance: TADALAFIL
     Dosage: 20 MG, 2/D
     Dates: start: 20091223
  4. SPIRONOLACTONE. [Concomitant]
     Active Substance: SPIRONOLACTONE

REACTIONS (7)
  - Arthralgia [Unknown]
  - Bone pain [Unknown]
  - Cough [Unknown]
  - Dental discomfort [Unknown]
  - Tooth loss [Unknown]
  - Oropharyngeal pain [Unknown]
  - Nasopharyngitis [Unknown]
